FAERS Safety Report 7746952-3 (Version None)
Quarter: 2011Q3

REPORT INFORMATION
  Report Type: 
  Country: None (occurrence: None)
  Receive Date: 20110913
  Receipt Date: 20110905
  Transmission Date: 20111222
  Serious: Yes (Hospitalization)
  Sender: FDA-Public Use
  Company Number: PHHY2011FR79703

PATIENT
  Sex: Female

DRUGS (5)
  1. ATERAX [Concomitant]
     Dosage: 3 DF DAILY
  2. CLONAZEPAM [Concomitant]
     Dosage: 1 MG, UNK
  3. TEGRETOL [Suspect]
     Indication: EPILEPSY
     Dosage: 100 MG 3 DF DAILY
     Dates: start: 20110715
  4. XYZAL [Concomitant]
     Dosage: 1 DF, TID
  5. TEGRETOL [Suspect]
     Dosage: 200 MG, TID
     Dates: start: 20110722, end: 20110727

REACTIONS (7)
  - LYMPHOPENIA [None]
  - RASH MACULAR [None]
  - MONOCYTE COUNT DECREASED [None]
  - NEUTROPENIA [None]
  - NAUSEA [None]
  - RASH PRURITIC [None]
  - PYREXIA [None]
